FAERS Safety Report 19907345 (Version 1)
Quarter: 2021Q4

REPORT INFORMATION
  Report Type: Spontaneous
  Country: BG (occurrence: BG)
  Receive Date: 20211001
  Receipt Date: 20211001
  Transmission Date: 20220303
  Serious: Yes (Other)
  Sender: FDA-Public Use
  Company Number: 2021A746587

PATIENT
  Sex: Male

DRUGS (3)
  1. IMFINZI [Suspect]
     Active Substance: DURVALUMAB
     Indication: Non-small cell lung cancer
     Dosage: ONE TIME IN AUGUST
     Route: 042
  2. IMFINZI [Suspect]
     Active Substance: DURVALUMAB
     Indication: Periodontal disease
     Dosage: ONE TIME IN AUGUST
     Route: 042
  3. IMFINZI [Suspect]
     Active Substance: DURVALUMAB
     Indication: Radiochemotherapy
     Dosage: ONE TIME IN AUGUST
     Route: 042

REACTIONS (1)
  - Radiation pneumonitis [Unknown]
